FAERS Safety Report 7320768-4 (Version None)
Quarter: 2011Q1

REPORT INFORMATION
  Report Type: 
  Country: None (occurrence: None)
  Receive Date: 20110228
  Receipt Date: 20110218
  Transmission Date: 20110831
  Serious: Yes (Other)
  Sender: FDA-Public Use
  Company Number: US-ASTRAZENECA-2006UW17502

PATIENT
  Sex: Female
  Weight: 113.4 kg

DRUGS (3)
  1. ZETIA [Suspect]
     Indication: HYPERLIPIDAEMIA
     Route: 048
     Dates: start: 20050401, end: 20060101
  2. CRESTOR [Suspect]
     Indication: HYPERLIPIDAEMIA
     Dosage: START FALL 2004
     Route: 048
     Dates: start: 20040101, end: 20060101
  3. GLUCOPHAGE [Concomitant]
     Dates: end: 20060101

REACTIONS (5)
  - BLOOD CREATINE PHOSPHOKINASE INCREASED [None]
  - RHABDOMYOLYSIS [None]
  - ARTHRALGIA [None]
  - URINE COLOUR ABNORMAL [None]
  - MUSCULAR WEAKNESS [None]
